FAERS Safety Report 4286391-3 (Version None)
Quarter: 2004Q1

REPORT INFORMATION
  Report Type: 
  Country: None (occurrence: None)
  Receive Date: 20040126
  Receipt Date: 20031106
  Transmission Date: 20041129
  Serious: Yes (Hospitalization)
  Sender: FDA-Public Use
  Company Number: USA031049317

PATIENT
  Age: 74 Year
  Sex: Female
  Weight: 51 kg

DRUGS (8)
  1. FORTEO [Suspect]
     Indication: OSTEOPOROSIS
     Dosage: 20 UG/DAY
     Dates: start: 20030811
  2. ENALAPRIL [Concomitant]
  3. HUMABID (GUAIFENESIN) [Concomitant]
  4. LASIX [Concomitant]
  5. THYROID TAB [Concomitant]
  6. TRI-ESTROGEN [Concomitant]
  7. ZYRTEC [Concomitant]
  8. RHINOCORT AQUA (BUDESONIDE) [Concomitant]

REACTIONS (6)
  - ASTHENIA [None]
  - CHILLS [None]
  - CYSTITIS [None]
  - FEELING ABNORMAL [None]
  - PNEUMONIA [None]
  - PYREXIA [None]
